FAERS Safety Report 7221723-5 (Version None)
Quarter: 2010Q4

REPORT INFORMATION
  Report Type: 
  Country: None (occurrence: None)
  Receive Date: 20101230
  Receipt Date: 20101215
  Transmission Date: 20110411
  Serious: Yes (Other)
  Sender: FDA-Public Use
  Company Number: AUR-APL-2010-03224

PATIENT
  Sex: Male

DRUGS (6)
  1. METFORMIN [Suspect]
  2. CELLCEPT [Suspect]
  3. CYCLOSPORINE [Suspect]
  4. PROGRAF [Suspect]
  5. MYFORTIC [Suspect]
  6. ACTOS [Suspect]

REACTIONS (3)
  - DIABETES MELLITUS [None]
  - LIPIDS ABNORMAL [None]
  - PRECANCEROUS SKIN LESION [None]
